FAERS Safety Report 22870961 (Version 3)
Quarter: 2023Q4

REPORT INFORMATION
  Report Type: Spontaneous
  Country: US (occurrence: US)
  Receive Date: 20230828
  Receipt Date: 20231009
  Transmission Date: 20240110
  Serious: Yes (Death, Hospitalization, Other)
  Sender: FDA-Public Use
  Company Number: US-JNJFOC-20230838006

PATIENT
  Sex: Female

DRUGS (1)
  1. TYLENOL PM [Suspect]
     Active Substance: ACETAMINOPHEN\DIPHENHYDRAMINE
     Indication: Sleep disorder therapy
     Dosage: TOOK IT FOR FIVE YEARS
     Route: 048
     Dates: end: 20210419

REACTIONS (6)
  - Kidney perforation [Fatal]
  - Exposure during pregnancy [Fatal]
  - Foetal death [Recovered/Resolved]
  - Hepatic failure [Fatal]
  - Acute kidney injury [Fatal]
  - Gastrointestinal haemorrhage [Fatal]
